FAERS Safety Report 8587093-5 (Version None)
Quarter: 2012Q3

REPORT INFORMATION
  Report Type: 
  Country: None (occurrence: None)
  Receive Date: 20120810
  Receipt Date: 20120807
  Transmission Date: 20120928
  Serious: Yes (Death, Life-Threatening, Hospitalization, Disabling)
  Sender: FDA-Public Use
  Company Number: LB-B.I. PHARMACEUTICALS,INC./RIDGEFIELD-2012-CS-01081AE

PATIENT
  Age: 85 Year
  Sex: Male

DRUGS (7)
  1. FUROSEMIDE [Concomitant]
  2. ROSUVASTATIN [Concomitant]
     Indication: HYPERLIPIDAEMIA
  3. ASPIRIN [Concomitant]
     Dosage: 81 MG
     Route: 048
  4. ESOMEPRAZOLE [Concomitant]
  5. PRADAXA [Suspect]
     Indication: ATRIAL FIBRILLATION
     Dosage: 220 MG
     Route: 048
     Dates: start: 20120123, end: 20120423
  6. ACE INHIBITOR [Concomitant]
     Indication: HYPERTENSION
  7. SPIRONOLACTONE [Concomitant]

REACTIONS (4)
  - HYPOXIA [None]
  - PULMONARY ALVEOLAR HAEMORRHAGE [None]
  - RESPIRATORY DISTRESS [None]
  - INFECTION [None]
